FAERS Safety Report 8158196-4 (Version None)
Quarter: 2012Q1

REPORT INFORMATION
  Report Type: 
  Country: None (occurrence: None)
  Receive Date: 20120222
  Receipt Date: 20120209
  Transmission Date: 20120608
  Serious: Yes (Other)
  Sender: FDA-Public Use
  Company Number: JP-MYLANLABS-2012S1003122

PATIENT
  Sex: Female

DRUGS (5)
  1. CARBOPLATIN [Suspect]
     Indication: GERM CELL CANCER
     Dosage: 400 MG/M2 FOR 1 DAY
     Route: 065
  2. DESMOPRESSIN ACETATE [Concomitant]
     Indication: HORMONE REPLACEMENT THERAPY
     Route: 065
  3. ETOPOSIDE [Suspect]
     Indication: GERM CELL CANCER
     Dosage: 100 MG/M2 FOR 3 CONSECUTIVE DAYS
     Route: 065
  4. HYDROCORTISONE [Concomitant]
     Indication: HORMONE REPLACEMENT THERAPY
     Route: 065
  5. LEVOTHYROXINE SODIUM [Concomitant]
     Indication: HORMONE REPLACEMENT THERAPY
     Route: 065

REACTIONS (1)
  - HAEMANGIOMA [None]
